FAERS Safety Report 7709175-X (Version None)
Quarter: 2011Q3

REPORT INFORMATION
  Report Type: 
  Country: None (occurrence: None)
  Receive Date: 20110825
  Receipt Date: 20110817
  Transmission Date: 20111222
  Serious: Yes (Hospitalization, Other)
  Sender: FDA-Public Use
  Company Number: GB-ROCHE-797435

PATIENT

DRUGS (2)
  1. CELLCEPT [Suspect]
     Indication: HEART TRANSPLANT
     Route: 048
  2. CELLCEPT [Suspect]
     Route: 048

REACTIONS (2)
  - CARDIAC FAILURE [None]
  - ILEOSTOMY [None]
